FAERS Safety Report 5661949-5 (Version None)
Quarter: 2008Q1

REPORT INFORMATION
  Report Type: 
  Country: None (occurrence: None)
  Receive Date: 20080310
  Receipt Date: 20080310
  Transmission Date: 20080703
  Serious: Yes (Life-Threatening)
  Sender: FDA-Public Use
  Company Number: None

PATIENT
  Age: 36 Year
  Sex: Female
  Weight: 86.1834 kg

DRUGS (2)
  1. CYMBALTA [Suspect]
     Indication: INTERVERTEBRAL DISC PROTRUSION
     Dosage: 60 MG ONCE DAILY PO
     Route: 048
     Dates: start: 20060902, end: 20060902
  2. CYMBALTA [Suspect]
     Indication: NEURALGIA
     Dosage: 60 MG ONCE DAILY PO
     Route: 048
     Dates: start: 20060902, end: 20060902

REACTIONS (1)
  - ANAPHYLACTIC REACTION [None]
